FAERS Safety Report 5231237-X (Version None)
Quarter: 2007Q1

REPORT INFORMATION
  Report Type: 
  Country: None (occurrence: None)
  Receive Date: 20070206
  Receipt Date: 20070131
  Transmission Date: 20070707
  Serious: Yes (Other)
  Sender: FDA-Public Use
  Company Number: 2007AP00758

PATIENT
  Age: 53 Year
  Sex: Female

DRUGS (2)
  1. ARIMIDEX [Suspect]
     Indication: BREAST CANCER
     Route: 048
     Dates: start: 20060101
  2. INTERFERON [Suspect]
     Dates: start: 20060101, end: 20060601

REACTIONS (2)
  - RETINAL TEAR [None]
  - VITREOUS FLOATERS [None]
